FAERS Safety Report 12082647 (Version 1)
Quarter: 2016Q1

REPORT INFORMATION
  Report Type: Spontaneous
  Country: US (occurrence: US)
  Receive Date: 20160217
  Receipt Date: 20160217
  Transmission Date: 20160526
  Serious: Yes (Other)
  Sender: FDA-Public Use
  Company Number: US-JNJCP-30000323782

PATIENT
  Sex: Female

DRUGS (1)
  1. NEUTROGENA HEALTHY SKIN FACE BROAD SPECTRUM SPF15 [Suspect]
     Active Substance: AVOBENZONE\OCTISALATE\OCTOCRYLENE\OXYBENZONE
     Indication: PRODUCT USED FOR UNKNOWN INDICATION
     Dosage: SEVEN TIMES A WEEK, SINCE ONE TO TWO WEEKS
     Route: 061

REACTIONS (3)
  - Application site exfoliation [Recovered/Resolved]
  - Application site rash [Recovered/Resolved]
  - Application site swelling [Recovered/Resolved]
